FAERS Safety Report 13955678 (Version 2)
Quarter: 2018Q1

REPORT INFORMATION
  Report Type: Spontaneous
  Country: US (occurrence: US)
  Receive Date: 20170911
  Receipt Date: 20180214
  Transmission Date: 20180508
  Serious: No
  Sender: FDA-Public Use
  Company Number: US-DSJP-DSU-2017-136292

PATIENT

DRUGS (2)
  1. DICLOFENAC/MISOPROSTOL [Suspect]
     Active Substance: DICLOFENAC SODIUM\MISOPROSTOL
  2. BENICAR [Suspect]
     Active Substance: OLMESARTAN MEDOXOMIL
     Indication: BLOOD PRESSURE INCREASED
     Dosage: 20 MG, QD
     Route: 048
     Dates: start: 20141210, end: 20171130

REACTIONS (7)
  - Diarrhoea [None]
  - Nausea [None]
  - Sprue-like enteropathy [None]
  - Dysphagia [None]
  - Gastrointestinal disorder [Recovering/Resolving]
  - Dizziness [Unknown]
  - Vomiting [None]

NARRATIVE: CASE EVENT DATE: 20141210
